FAERS Safety Report 8637902 (Version 3)
Quarter: 2014Q2

REPORT INFORMATION
  Report Type: Report from Study
  Country: JP (occurrence: JP)
  Receive Date: 20120627
  Receipt Date: 20140606
  Transmission Date: 20141212
  Serious: Yes (Death, Life-Threatening, Other)
  Sender: FDA-Public Use
  Company Number: JP-CELGENEUS-087-50794-12063339

PATIENT
  Age: 75 Year
  Sex: Female
  Weight: 38 kg

DRUGS (28)
  1. VIDAZA [Suspect]
     Indication: MYELODYSPLASTIC SYNDROME
     Dosage: 75 MILLIGRAM/SQ. METER
     Route: 058
     Dates: start: 20110323, end: 20110331
  2. VIDAZA [Suspect]
     Dosage: 25 MILLIGRAM/SQ. METER
     Route: 058
     Dates: start: 20110516, end: 20110524
  3. VIDAZA [Suspect]
     Dosage: 25 MILLIGRAM/SQ. METER
     Route: 041
     Dates: start: 20110615, end: 20110622
  4. VIDAZA [Suspect]
     Dosage: 25 MILLIGRAM/SQ. METER
     Route: 041
     Dates: start: 20110727, end: 20110803
  5. VIDAZA [Suspect]
     Dosage: 25 MILLIGRAM/SQ. METER
     Route: 041
     Dates: start: 20110825, end: 20110902
  6. MAGMITT [Concomitant]
     Indication: PRODUCT USED FOR UNKNOWN INDICATION
     Route: 065
     Dates: end: 20110422
  7. GASTER [Concomitant]
     Indication: PRODUCT USED FOR UNKNOWN INDICATION
     Route: 065
     Dates: start: 20110323, end: 20110922
  8. GASMOTIN [Concomitant]
     Indication: PRODUCT USED FOR UNKNOWN INDICATION
     Route: 065
     Dates: end: 20110422
  9. HOCHUEKKITO (CHINESE HERBAL EXTRACT) [Concomitant]
     Indication: PRODUCT USED FOR UNKNOWN INDICATION
     Route: 065
  10. ITRIZOLE [Concomitant]
     Indication: PRODUCT USED FOR UNKNOWN INDICATION
     Route: 065
     Dates: start: 20110325, end: 20110919
  11. BACTRAMIN [Concomitant]
     Indication: PRODUCT USED FOR UNKNOWN INDICATION
     Route: 065
     Dates: start: 20110325, end: 20110922
  12. LENDORMIN [Concomitant]
     Indication: PRODUCT USED FOR UNKNOWN INDICATION
     Route: 065
     Dates: start: 20110410, end: 20110922
  13. EXJADE [Concomitant]
     Indication: PRODUCT USED FOR UNKNOWN INDICATION
     Route: 065
     Dates: start: 20110507, end: 20110922
  14. GASTROM [Concomitant]
     Indication: PRODUCT USED FOR UNKNOWN INDICATION
     Route: 065
     Dates: start: 20110421, end: 20110922
  15. KYTRIL [Concomitant]
     Indication: PRODUCT USED FOR UNKNOWN INDICATION
     Route: 065
     Dates: start: 20110323, end: 20110925
  16. NERIPROCT [Concomitant]
     Indication: PRODUCT USED FOR UNKNOWN INDICATION
     Route: 065
     Dates: start: 20110613, end: 20110925
  17. SEROTONE [Concomitant]
     Indication: PRODUCT USED FOR UNKNOWN INDICATION
     Route: 065
     Dates: start: 20110615, end: 20110902
  18. OXINORM [Concomitant]
     Indication: PRODUCT USED FOR UNKNOWN INDICATION
     Route: 065
     Dates: start: 20110922, end: 20110925
  19. PREDONINE [Concomitant]
     Indication: PRODUCT USED FOR UNKNOWN INDICATION
     Route: 065
     Dates: start: 20110914, end: 20110925
  20. BFLUID [Concomitant]
     Indication: PRODUCT USED FOR UNKNOWN INDICATION
     Route: 065
     Dates: start: 20110905, end: 20110925
  21. MORPHINE HYDROCHLORIDE HYDRATE [Concomitant]
     Indication: PRODUCT USED FOR UNKNOWN INDICATION
     Route: 065
     Dates: start: 20110925, end: 20110925
  22. IMIPENEM-CILASTATIN [Concomitant]
     Indication: PRODUCT USED FOR UNKNOWN INDICATION
     Route: 065
     Dates: start: 20110905, end: 20110920
  23. ACETAMINOPHEN [Concomitant]
     Indication: PRODUCT USED FOR UNKNOWN INDICATION
     Route: 065
     Dates: start: 20110905, end: 20110923
  24. PRIDOL [Concomitant]
     Indication: PRODUCT USED FOR UNKNOWN INDICATION
     Route: 065
     Dates: start: 20110916, end: 20110917
  25. FUNGUARD [Concomitant]
     Indication: PRODUCT USED FOR UNKNOWN INDICATION
     Route: 065
     Dates: start: 20110920, end: 20110925
  26. MEROPEN [Concomitant]
     Indication: PRODUCT USED FOR UNKNOWN INDICATION
     Route: 065
     Dates: start: 20110921, end: 20110925
  27. RESTAMIN [Concomitant]
     Indication: PRODUCT USED FOR UNKNOWN INDICATION
     Route: 065
     Dates: start: 20110331
  28. NERISONA [Concomitant]
     Indication: PRODUCT USED FOR UNKNOWN INDICATION
     Route: 065
     Dates: start: 20110607

REACTIONS (10)
  - Acute myeloid leukaemia [Fatal]
  - C-reactive protein increased [Not Recovered/Not Resolved]
  - Blood lactate dehydrogenase increased [Not Recovered/Not Resolved]
  - Infection [Not Recovered/Not Resolved]
  - Haemorrhage subcutaneous [Not Recovered/Not Resolved]
  - Pruritus [Recovered/Resolved]
  - Hypokalaemia [Recovered/Resolved]
  - Haemorrhoids [Not Recovered/Not Resolved]
  - Iron overload [Not Recovered/Not Resolved]
  - Hypokalaemia [Recovered/Resolved]
